FAERS Safety Report 7110228-8 (Version None)
Quarter: 2010Q4

REPORT INFORMATION
  Report Type: 
  Country: None (occurrence: None)
  Receive Date: 20101117
  Receipt Date: 20101117
  Transmission Date: 20110411
  Serious: Yes (Other)
  Sender: FDA-Public Use
  Company Number: None

PATIENT
  Sex: Female

DRUGS (1)
  1. VAGIFEM [Suspect]
     Dosage: 2X WEEKLY VAGINALLY
     Route: 067
     Dates: start: 20100610, end: 20101015

REACTIONS (1)
  - DRUG HYPERSENSITIVITY [None]
